FAERS Safety Report 11545566 (Version 1)
Quarter: 2015Q3

REPORT INFORMATION
  Report Type: Spontaneous
  Country: US (occurrence: US)
  Receive Date: 20150903
  Receipt Date: 20150903
  Transmission Date: 20151125
  Serious: No
  Sender: FDA-Public Use
  Company Number: US-ELI_LILLY_AND_COMPANY-US201106000751

PATIENT
  Sex: Female

DRUGS (2)
  1. HUMALOG [Suspect]
     Active Substance: INSULIN LISPRO
     Indication: DIABETES MELLITUS
     Dosage: UNK, QID
     Route: 065
  2. LEVEMIR [Concomitant]
     Active Substance: INSULIN DETEMIR
     Dosage: UNK

REACTIONS (8)
  - Injection site mass [Not Recovered/Not Resolved]
  - Blood glucose increased [Unknown]
  - Injection site erythema [Not Recovered/Not Resolved]
  - Injection site bruising [Unknown]
  - Learning disability [Not Recovered/Not Resolved]
  - Memory impairment [Unknown]
  - Arthralgia [Not Recovered/Not Resolved]
  - Blood glucose decreased [Unknown]

NARRATIVE: CASE EVENT DATE: 20110504
